FAERS Safety Report 8500233-9 (Version None)
Quarter: 2012Q3

REPORT INFORMATION
  Report Type: 
  Country: None (occurrence: None)
  Receive Date: 20120710
  Receipt Date: 20120704
  Transmission Date: 20120928
  Serious: Yes (Hospitalization)
  Sender: FDA-Public Use
  Company Number: PHHY2012CN057351

PATIENT
  Age: 36 Year
  Sex: Female

DRUGS (1)
  1. CEFTRIAXONE [Suspect]
     Indication: UPPER RESPIRATORY TRACT INFECTION

REACTIONS (15)
  - STRESS CARDIOMYOPATHY [None]
  - OLIGURIA [None]
  - PULMONARY OEDEMA [None]
  - DIZZINESS [None]
  - DYSPNOEA [None]
  - HYPOTENSION [None]
  - HYPOXIA [None]
  - TACHYCARDIA [None]
  - URTICARIA [None]
  - MULTI-ORGAN FAILURE [None]
  - ANAPHYLACTIC REACTION [None]
  - ACUTE RESPIRATORY FAILURE [None]
  - HAEMODYNAMIC INSTABILITY [None]
  - CHEST DISCOMFORT [None]
  - METABOLIC ACIDOSIS [None]
